FAERS Safety Report 6589211-7 (Version None)
Quarter: 2010Q1

REPORT INFORMATION
  Report Type: 
  Country: None (occurrence: None)
  Receive Date: 20100218
  Receipt Date: 20100217
  Transmission Date: 20100710
  Serious: No
  Sender: FDA-Public Use
  Company Number: US-B.I. PHARMACEUTICALS,INC./RIDGEFIELD-2010-BP-01906BP

PATIENT
  Age: 76 Year
  Sex: Male

DRUGS (7)
  1. FLOMAX [Suspect]
     Indication: PROSTATOMEGALY
     Dosage: 0.4 MG
     Route: 048
     Dates: start: 20100212
  2. SPIRIVA [Concomitant]
     Indication: EMPHYSEMA
     Route: 055
     Dates: start: 20080701
  3. NORVASC [Concomitant]
     Indication: HYPERTENSION
     Dates: start: 20080201
  4. COZAAR [Concomitant]
     Indication: HYPERTENSION
  5. ZOCOR [Concomitant]
     Indication: BLOOD CHOLESTEROL INCREASED
  6. WARFARIN SODIUM [Concomitant]
     Indication: CEREBROVASCULAR ACCIDENT PROPHYLAXIS
     Dates: start: 20000201
  7. XALATAN [Concomitant]
     Indication: GLAUCOMA

REACTIONS (1)
  - VISION BLURRED [None]
